FAERS Safety Report 6984146-X (Version None)
Quarter: 2010Q3

REPORT INFORMATION
  Report Type: 
  Country: None (occurrence: None)
  Receive Date: 20100915
  Receipt Date: 20090716
  Transmission Date: 20110219
  Serious: No
  Sender: FDA-Public Use
  Company Number: US-WYE-H10199909

PATIENT
  Age: 24 Year
  Sex: Male
  Weight: 111.23 kg

DRUGS (1)
  1. ADVIL LIQUI-GELS [Suspect]
     Indication: HEADACHE
     Route: 048
     Dates: start: 20090716, end: 20090716

REACTIONS (2)
  - CAPSULE ISSUE [None]
  - ORAL DISCOMFORT [None]
